FAERS Safety Report 16890717 (Version 2)
Quarter: 2019Q4

REPORT INFORMATION
  Report Type: Spontaneous
  Country: US (occurrence: US)
  Receive Date: 20191007
  Receipt Date: 20191007
  Transmission Date: 20200122
  Serious: No
  Sender: FDA-Public Use
  Company Number: US-PFIZER INC-2019429455

PATIENT
  Age: 73 Year
  Sex: Female
  Weight: 65.76 kg

DRUGS (9)
  1. PREDNISONE. [Concomitant]
     Active Substance: PREDNISONE
     Dosage: UNK
  2. IBRANCE [Suspect]
     Active Substance: PALBOCICLIB
     Indication: BRONCHIAL CARCINOMA
     Dosage: 125 MG, CYCLIC(DAILY FOR 21 DAYS, 7 DAYS OFF)
     Route: 048
     Dates: start: 20171115
  3. KONSYL [PLANTAGO AFRA] [Concomitant]
     Dosage: UNK
  4. DIPHENOXYLATE/ATROPINE [Concomitant]
     Active Substance: ATROPINE\DIPHENOXYLATE
     Dosage: UNK
  5. APRISO [Concomitant]
     Active Substance: MESALAMINE
     Dosage: UNK
  6. EXEMESTANE. [Concomitant]
     Active Substance: EXEMESTANE
     Dosage: UNK
  7. DULOXETINE. [Concomitant]
     Active Substance: DULOXETINE
     Dosage: UNK
  8. ASPIRIN EC [Concomitant]
     Active Substance: ASPIRIN
     Dosage: UNK
  9. ATORVASTATIN CALCIUM. [Concomitant]
     Active Substance: ATORVASTATIN CALCIUM
     Dosage: UNK

REACTIONS (2)
  - Ulcer [Unknown]
  - Neoplasm progression [Unknown]
